FAERS Safety Report 11102609 (Version 1)
Quarter: 2015Q2

REPORT INFORMATION
  Report Type: Spontaneous
  Country: DE (occurrence: DE)
  Receive Date: 20150511
  Receipt Date: 20150511
  Transmission Date: 20150821
  Serious: Yes (Disabling, Other)
  Sender: FDA-Public Use
  Company Number: DE-SUN PHARMACEUTICAL INDUSTRIES LTD-2015R1-96833

PATIENT
  Sex: Female
  Weight: 3.13 kg

DRUGS (4)
  1. SKINOREN CREME [Concomitant]
     Indication: ACNE
     Dosage: UNK
     Route: 064
     Dates: start: 20131227, end: 20131228
  2. FOLIO FORTE [Concomitant]
     Active Substance: FOLIC ACID\VITAMINS
     Indication: PROPHYLAXIS OF NEURAL TUBE DEFECT
     Dosage: 0.8 MG, DAILY
     Route: 064
     Dates: start: 20140128, end: 20140927
  3. DOXAKNE TABS [Concomitant]
     Indication: ACNE
     Dosage: 50 MG, QD
     Route: 064
     Dates: start: 20131227, end: 20141224
  4. FLUOXETINE [Suspect]
     Active Substance: FLUOXETINE\FLUOXETINE HYDROCHLORIDE
     Indication: DEPRESSION
     Dosage: 20 MG, QD
     Route: 064
     Dates: start: 20131227, end: 20140124

REACTIONS (2)
  - Atrial septal defect [Not Recovered/Not Resolved]
  - Foetal exposure during pregnancy [Unknown]
